FAERS Safety Report 15540991 (Version 1)
Quarter: 2018Q4

REPORT INFORMATION
  Report Type: Spontaneous
  Country: FR (occurrence: FR)
  Receive Date: 20181023
  Receipt Date: 20181023
  Transmission Date: 20190205
  Serious: Yes (Other)
  Sender: FDA-Public Use
  Company Number: PHHY2018FR127555

PATIENT
  Age: 59 Year
  Sex: Female

DRUGS (1)
  1. DEXAMETHASONE. [Suspect]
     Active Substance: DEXAMETHASONE
     Indication: DIABETIC RETINAL OEDEMA
     Dosage: SLOW-RELEASE, SEVEN DEX-I IVI IN THE RIGHT EYE AND SIX DEX-I IVI IN THE LEFT EYE
     Route: 047

REACTIONS (1)
  - Ocular hypertension [Recovered/Resolved]
